FAERS Safety Report 8940227 (Version 2)
Quarter: 2012Q4

REPORT INFORMATION
  Report Type: 
  Country: US (occurrence: US)
  Receive Date: 20121201
  Receipt Date: 20121227
  Transmission Date: 20130627
  Serious: No
  Sender: FDA-Public Use
  Company Number: US-ASTRAZENECA-2012SE86702

PATIENT
  Sex: Male

DRUGS (1)
  1. SYMBICORT PMDI [Suspect]
     Dosage: 160/4.5, frequency unknown
     Route: 055

REACTIONS (6)
  - Asthma [Unknown]
  - Dysgeusia [Unknown]
  - Drug dose omission [Unknown]
  - Malaise [Unknown]
  - Retching [Unknown]
  - Drug ineffective [Unknown]
